FAERS Safety Report 19104854 (Version 5)
Quarter: 2023Q4

REPORT INFORMATION
  Report Type: Other
  Country: NL (occurrence: None)
  Receive Date: 20210407
  Receipt Date: 20231219
  Transmission Date: 20240110
  Serious: No
  Sender: FDA-Public Use
  Company Number: NL-ROCHE-2804935

PATIENT
  Age: 53 Year
  Sex: Female
  Weight: 80 kg

DRUGS (8)
  1. OCRELIZUMAB [Suspect]
     Active Substance: OCRELIZUMAB
     Indication: Relapsing-remitting multiple sclerosis
     Dosage: SUBSEQUENT DOSE: 29/MAR/2019
     Route: 042
     Dates: start: 20190314
  2. OCRELIZUMAB [Suspect]
     Active Substance: OCRELIZUMAB
     Dosage: SUBSEQUENT DOSE: 12/MAR/2020 (LOT NUMBER: UNKNOWN), 24/SEP/2020 (LOT NUMBER: UNKNOWN), 15/APR/2021 (
     Route: 042
     Dates: start: 20190912
  3. CITALOPRAM [Concomitant]
     Active Substance: CITALOPRAM HYDROBROMIDE
     Indication: Depression
     Route: 048
     Dates: start: 20190523
  4. AMITRIPTYLINE [Concomitant]
     Active Substance: AMITRIPTYLINE
     Indication: Neuralgia
     Route: 048
     Dates: start: 20190523
  5. ETHINYL ESTRADIOL\LEVONORGESTREL [Concomitant]
     Active Substance: ETHINYL ESTRADIOL\LEVONORGESTREL
     Indication: Prophylaxis
     Dosage: 30/150 MICROGRAM
     Route: 048
  6. SOLU-MEDROL [Concomitant]
     Active Substance: METHYLPREDNISOLONE SODIUM SUCCINATE
     Indication: Premedication
     Dosage: SUBSEQUENT DOSE: 29/MAR/2019, 12/SEP/2019, 12/MAR/2020, 24/SEP/2020, 14/APR/2022?MEDICATION SUBCATEG
     Route: 042
     Dates: start: 20190314
  7. ACETAMINOPHEN [Concomitant]
     Active Substance: ACETAMINOPHEN
     Indication: Premedication
     Dosage: SUBSEQUENT DOSE: 29/MAR/2019, 12/SEP/2019, 12/MAR/2020, 24/SEP/2020, 14/APR/2022?MEDICATION CATEGORY
     Route: 048
     Dates: start: 20190314
  8. CLEMASTINE [Concomitant]
     Active Substance: CLEMASTINE
     Indication: Premedication
     Dosage: SUBSEQUENT DOSE: 29/MAR/2019, 12/SEP/2019, 12/MAR/2020, 24/SEP/2020, 14/APR/2022?MEDICATION SUBCATEG
     Route: 042
     Dates: start: 20190314

REACTIONS (1)
  - SARS-CoV-2 test positive [Recovered/Resolved]

NARRATIVE: CASE EVENT DATE: 20210301
